FAERS Safety Report 9115402 (Version 2)
Quarter: 2013Q2

REPORT INFORMATION
  Report Type: Spontaneous
  Country: US (occurrence: US)
  Receive Date: 20130225
  Receipt Date: 20130404
  Transmission Date: 20140414
  Serious: Yes (Other)
  Sender: FDA-Public Use
  Company Number: US-PFIZER INC-2013067729

PATIENT
  Age: 52 Year
  Sex: Female
  Weight: 51 kg

DRUGS (9)
  1. LIPITOR [Suspect]
     Indication: BLOOD CHOLESTEROL INCREASED
     Dosage: 20 MG, DAILY
     Route: 048
     Dates: start: 2003
  2. PAXIL [Concomitant]
     Indication: DEPRESSION
     Dosage: 20 MG, DAILY
  3. TRAZODONE [Concomitant]
     Dosage: 100 MG, 2X/DAY
  4. TIZANIDINE [Concomitant]
     Dosage: 2 MG, 2X/DAY
  5. AMITRIPTYLINE [Concomitant]
     Dosage: 75 MG, DAILY
  6. BUSPAR [Concomitant]
     Dosage: 10 MG, 2X/DAY
  7. ANASTROZOLE [Concomitant]
     Dosage: UNK
  8. XANAX [Concomitant]
     Dosage: 1 MG, UNK
  9. FUROSEMIDE [Concomitant]
     Dosage: 20 MG, DAILY

REACTIONS (3)
  - Drug ineffective [Unknown]
  - Neuropathy peripheral [Unknown]
  - Limb discomfort [Unknown]
